FAERS Safety Report 14551822 (Version 5)
Quarter: 2019Q3

REPORT INFORMATION
  Report Type: Spontaneous
  Country: US (occurrence: US)
  Receive Date: 20180220
  Receipt Date: 20190909
  Transmission Date: 20191004
  Serious: Yes (Hospitalization, Other)
  Sender: FDA-Public Use
  Company Number: US-PFIZER INC-2018065640

PATIENT
  Age: 71 Year
  Sex: Female
  Weight: 83 kg

DRUGS (7)
  1. XELJANZ XR [Suspect]
     Active Substance: TOFACITINIB CITRATE
     Dosage: 11 MG, 1X/DAY
     Route: 048
  2. DULOXETINE HCL [Suspect]
     Active Substance: DULOXETINE HYDROCHLORIDE
     Indication: DEPRESSION
  3. CBD OIL [Suspect]
     Active Substance: CANNABIDIOL\HERBALS
     Dosage: 500 MG, UNK
     Dates: start: 201903
  4. XELJANZ XR [Suspect]
     Active Substance: TOFACITINIB CITRATE
     Dosage: 11 MG, 1X/DAY
     Route: 048
  5. DULOXETINE HCL [Suspect]
     Active Substance: DULOXETINE HYDROCHLORIDE
     Indication: PAIN
     Dosage: UNK
  6. XELJANZ XR [Suspect]
     Active Substance: TOFACITINIB CITRATE
     Indication: RHEUMATOID ARTHRITIS
     Dosage: 11 MG, 1X/DAY
     Route: 048
  7. LOSARTAN. [Suspect]
     Active Substance: LOSARTAN
     Indication: HYPERTENSION
     Dosage: UNK

REACTIONS (20)
  - Weight increased [Unknown]
  - Weight decreased [Unknown]
  - Increased appetite [Unknown]
  - Fall [Unknown]
  - Concussion [Unknown]
  - Asthma [Recovered/Resolved]
  - Bronchitis [Recovered/Resolved]
  - Nasopharyngitis [Recovered/Resolved]
  - Loss of consciousness [Unknown]
  - Blood pressure decreased [Unknown]
  - Dysstasia [Unknown]
  - Depression [Recovering/Resolving]
  - Blood pressure abnormal [Unknown]
  - Decreased appetite [Unknown]
  - Headache [Unknown]
  - Dizziness [Recovering/Resolving]
  - Facial bones fracture [Unknown]
  - Head injury [Unknown]
  - Eye contusion [Unknown]
  - Presyncope [Unknown]

NARRATIVE: CASE EVENT DATE: 201702
